FAERS Safety Report 18961582 (Version 1)
Quarter: 2021Q1

REPORT INFORMATION
  Report Type: Spontaneous
  Country: CA (occurrence: CA)
  Receive Date: 20210303
  Receipt Date: 20210303
  Transmission Date: 20210420
  Serious: Yes (Hospitalization, Other)
  Sender: FDA-Public Use
  Company Number: CA-JNJFOC-20210243890

PATIENT
  Age: 46 Year
  Sex: Male
  Weight: 98 kg

DRUGS (2)
  1. INFLIXIMAB, RECOMBINANT [Suspect]
     Active Substance: INFLIXIMAB
     Indication: CROHN^S DISEASE
     Route: 042
  2. ACETAMINOPHEN. [Concomitant]
     Active Substance: ACETAMINOPHEN
     Indication: PREMEDICATION
     Route: 042

REACTIONS (6)
  - Blood pressure fluctuation [Unknown]
  - Intentional product use issue [Unknown]
  - Mastitis [Unknown]
  - Facial paralysis [Unknown]
  - Ear infection [Unknown]
  - Off label use [Unknown]
